FAERS Safety Report 22613895 (Version 1)
Quarter: 2023Q2

REPORT INFORMATION
  Report Type: Spontaneous
  Country: US (occurrence: US)
  Receive Date: 20230619
  Receipt Date: 20230619
  Transmission Date: 20230722
  Serious: Yes (Hospitalization, Other)
  Sender: FDA-Public Use
  Company Number: US-AJANTA-2023AJA00127

PATIENT
  Age: 16 Year
  Sex: Female

DRUGS (11)
  1. CHOLESTYRAMINE [Suspect]
     Active Substance: CHOLESTYRAMINE
     Indication: Thyrotoxic crisis
  2. CHOLESTYRAMINE [Suspect]
     Active Substance: CHOLESTYRAMINE
  3. METHIMAZOLE [Concomitant]
     Active Substance: METHIMAZOLE
     Indication: Graves^ disease
  4. METHIMAZOLE [Concomitant]
     Active Substance: METHIMAZOLE
  5. PROPRANOLOL [Concomitant]
     Active Substance: PROPRANOLOL HYDROCHLORIDE
  6. LUGOL [Concomitant]
     Active Substance: IODINE\POTASSIUM IODIDE
  7. HYDROCORTISONE [Concomitant]
     Active Substance: HYDROCORTISONE
     Route: 042
  8. HYDROCORTISONE [Concomitant]
     Active Substance: HYDROCORTISONE
     Route: 042
  9. MORPHINE SULFATE [Concomitant]
     Active Substance: MORPHINE SULFATE
     Route: 042
  10. SODIUM CHLORIDE [Concomitant]
     Active Substance: SODIUM CHLORIDE
     Route: 040
  11. IBUPROFEN [Concomitant]
     Active Substance: IBUPROFEN

REACTIONS (9)
  - Multisystem inflammatory syndrome in children [Recovering/Resolving]
  - Cardiomegaly [Recovering/Resolving]
  - Pericardial effusion [Recovering/Resolving]
  - Pulmonary oedema [Recovering/Resolving]
  - Tachycardia [Recovered/Resolved]
  - Chest pain [Recovering/Resolving]
  - Hypoxia [Recovering/Resolving]
  - Coronary artery dilatation [Recovering/Resolving]
  - Dyspnoea [Recovering/Resolving]
